FAERS Safety Report 4596251-6 (Version None)
Quarter: 2005Q1

REPORT INFORMATION
  Report Type: 
  Country: None (occurrence: None)
  Receive Date: 20050224
  Receipt Date: 20050209
  Transmission Date: 20050727
  Serious: Yes (Hospitalization)
  Sender: FDA-Public Use
  Company Number: A-CH2005-08853

PATIENT
  Age: 78 Year
  Sex: Male
  Weight: 72 kg

DRUGS (10)
  1. TRACLEER [Suspect]
     Indication: PULMONARY HYPERTENSION
     Dosage: SEE IMAGE
     Dates: start: 20021125, end: 20030201
  2. TRACLEER [Suspect]
     Indication: PULMONARY HYPERTENSION
     Dosage: SEE IMAGE
     Dates: start: 20030423, end: 20030401
  3. TRACLEER [Suspect]
     Indication: PULMONARY HYPERTENSION
     Dosage: SEE IMAGE
     Dates: start: 20030202, end: 20030422
  4. TRACLEER [Suspect]
     Indication: PULMONARY HYPERTENSION
     Dosage: SEE IMAGE
     Dates: start: 20030701
  5. COUMADIN [Concomitant]
  6. LASILIX (FUROSEMIDE) [Concomitant]
  7. ARANESP [Concomitant]
  8. AMLODIPINE BESYLATE [Concomitant]
  9. FERROUS SULFATE TAB [Concomitant]
  10. LANTUS [Concomitant]

REACTIONS (13)
  - ANAEMIA [None]
  - CONDITION AGGRAVATED [None]
  - DYSPNOEA [None]
  - ERYSIPELAS [None]
  - ERYTHEMA [None]
  - FLUID RETENTION [None]
  - GENERALISED OEDEMA [None]
  - HAEMODIALYSIS [None]
  - MUSCLE SPASMS [None]
  - PULMONARY OEDEMA [None]
  - RENAL FAILURE ACUTE [None]
  - SODIUM RETENTION [None]
  - TRANSAMINASES INCREASED [None]
